FAERS Safety Report 22322207 (Version 2)
Quarter: 2023Q2

REPORT INFORMATION
  Report Type: Spontaneous
  Country: US (occurrence: US)
  Receive Date: 20230516
  Receipt Date: 20230627
  Transmission Date: 20230722
  Serious: No
  Sender: FDA-Public Use
  Company Number: US-SA-SAC20230512000336

PATIENT
  Age: 48 Year
  Sex: Female
  Weight: 88.45 kg

DRUGS (11)
  1. DUPIXENT [Suspect]
     Active Substance: DUPILUMAB
     Indication: Dermatitis atopic
     Dosage: 600 MG, 1X
     Route: 058
     Dates: start: 20230505, end: 20230505
  2. DUPIXENT [Suspect]
     Active Substance: DUPILUMAB
     Indication: Dermatitis atopic
     Dosage: 300 MG, QOW
     Route: 058
  3. HYDROXYZINE [Concomitant]
     Active Substance: HYDROXYZINE HYDROCHLORIDE
  4. LIDOCAINE\PRILOCAINE [Concomitant]
     Active Substance: LIDOCAINE\PRILOCAINE
  5. QULIPTA [Concomitant]
     Active Substance: ATOGEPANT
  6. TACROLIMUS [Concomitant]
     Active Substance: TACROLIMUS
  7. UBRELVY [Concomitant]
     Active Substance: UBROGEPANT
  8. OPZELURA [Concomitant]
     Active Substance: RUXOLITINIB PHOSPHATE
  9. NORETHINDRONE ACETATE [Concomitant]
     Active Substance: NORETHINDRONE ACETATE
  10. METRONIDAZOLE [Concomitant]
     Active Substance: METRONIDAZOLE
  11. SLEEP AID [MELATONIN] [Concomitant]

REACTIONS (2)
  - Migraine [Recovered/Resolved]
  - Injection site pain [Recovered/Resolved]

NARRATIVE: CASE EVENT DATE: 20230505
